FAERS Safety Report 7903891-2 (Version None)
Quarter: 2011Q4

REPORT INFORMATION
  Report Type: 
  Country: None (occurrence: None)
  Receive Date: 20111109
  Receipt Date: 20111102
  Transmission Date: 20120403
  Serious: Yes (Hospitalization)
  Sender: FDA-Public Use
  Company Number: DE-UCBSA-041577

PATIENT
  Age: 56 Year
  Sex: Male

DRUGS (13)
  1. VICTOZA [Concomitant]
     Dosage: 1.8 MG
     Route: 058
  2. METFORMIN HYDROCHLORIDE [Concomitant]
     Dosage: 50/1000 2XDAILY
  3. RAMIPRIL [Concomitant]
     Dosage: 5 2X1 TABLET
  4. EZEDROL [Concomitant]
     Dosage: 10
  5. METFORMIN HCL [Concomitant]
     Dosage: 1000 MIDDAY
  6. LANTUS [Concomitant]
     Dosage: 40 IE
     Route: 058
  7. NEUPRO [Suspect]
     Route: 062
  8. LEVOPAR [Suspect]
     Dosage: 125 MG 3 X 1 TABLET
  9. HYDROCHLOROTHIAZIDE [Concomitant]
     Dosage: 25 MG
  10. AMLODIPINE [Concomitant]
     Dosage: 5
  11. SELEGILINE [Suspect]
     Dosage: 5 MG
  12. ASPIRIN [Concomitant]
     Dosage: 100
  13. METFORMIN HYDROCHLORIDE [Concomitant]
     Dosage: 50/1000 2XDAILY

REACTIONS (3)
  - SLEEP DISORDER [None]
  - PARAESTHESIA [None]
  - ON AND OFF PHENOMENON [None]
